FAERS Safety Report 5585874-3 (Version None)
Quarter: 2008Q1

REPORT INFORMATION
  Report Type: 
  Country: None (occurrence: None)
  Receive Date: 20080109
  Receipt Date: 20071012
  Transmission Date: 20080703
  Serious: Yes (Death, Other)
  Sender: FDA-Public Use
  Company Number: GB-RANBAXY-2007RR-09421

PATIENT

DRUGS (10)
  1. METRONIDAZOLE [Suspect]
  2. AUGMENTIN '250' [Suspect]
     Indication: INFECTION
  3. LEVOFLOXACIN [Suspect]
  4. GENTAMICIN [Suspect]
     Indication: INFECTION
  5. PARACETAMOL CAPSULES 500MG [Suspect]
  6. PARACETAMOL CAPSULES 500MG [Suspect]
     Indication: INFECTION
  7. VANCOMYCIN HYDROCHLORIDE [Suspect]
  8. DICLOFENAC SODIUM [Suspect]
  9. METOCLOPRAMIDE [Suspect]
  10. OMEPRAZOLE [Suspect]

REACTIONS (3)
  - DISORIENTATION [None]
  - METABOLIC ACIDOSIS [None]
  - MYOCARDIAL INFARCTION [None]
